FAERS Safety Report 7490285-X (Version None)
Quarter: 2011Q2

REPORT INFORMATION
  Report Type: 
  Country: None (occurrence: None)
  Receive Date: 20110519
  Receipt Date: 20100706
  Transmission Date: 20111010
  Serious: No
  Sender: FDA-Public Use
  Company Number: US-BRISTOL-MYERS SQUIBB COMPANY-15179476

PATIENT
  Sex: Female

DRUGS (1)
  1. BARACLUDE [Suspect]
     Dosage: STOPPED IN 2008 RESTARTED IN 2009
     Dates: start: 20060101

REACTIONS (2)
  - FATIGUE [None]
  - SOMNOLENCE [None]
